FAERS Safety Report 5085901-6 (Version None)
Quarter: 2006Q3

REPORT INFORMATION
  Report Type: 
  Country: None (occurrence: None)
  Receive Date: 20060815
  Receipt Date: 20060807
  Transmission Date: 20061208
  Serious: Yes (Hospitalization)
  Sender: FDA-Public Use
  Company Number: 2006-146371-NL

PATIENT
  Age: 69 Year
  Sex: Male

DRUGS (3)
  1. TICE BCG [Suspect]
     Indication: CARCINOMA IN SITU OF BLADDER
     Dosage: INTRAVENOUS (NOS)
     Route: 042
     Dates: start: 20000101
  2. TICE BCG [Suspect]
     Indication: RECURRENT CANCER
     Dosage: INTRAVENOUS (NOS)
     Route: 042
     Dates: start: 20000101
  3. TICE BCG [Suspect]
     Indication: CARCINOMA IN SITU OF BLADDER
     Dosage: INTRAVESICAL
     Route: 043
     Dates: start: 19970101

REACTIONS (16)
  - ABDOMINAL ADHESIONS [None]
  - ABDOMINAL PAIN [None]
  - ABSCESS [None]
  - AORTIC ANEURYSM RUPTURE [None]
  - AORTIC BYPASS [None]
  - BACTERIAL INFECTION [None]
  - BACTEROIDES INFECTION [None]
  - BETA HAEMOLYTIC STREPTOCOCCAL INFECTION [None]
  - BONE GRAFT [None]
  - MUSCLE HAEMORRHAGE [None]
  - NERVOUS SYSTEM DISORDER [None]
  - PARESIS [None]
  - PATHOGEN RESISTANCE [None]
  - SPONDYLITIS [None]
  - TUBERCULOSIS [None]
  - VISUAL DISTURBANCE [None]
